FAERS Safety Report 9831212 (Version 3)
Quarter: 2014Q1

REPORT INFORMATION
  Report Type: Spontaneous
  Country: HU (occurrence: HU)
  Receive Date: 20140121
  Receipt Date: 20140210
  Transmission Date: 20141002
  Serious: Yes (Death)
  Sender: FDA-Public Use
  Company Number: HU-ROCHE-1335994

PATIENT
  Sex: Female

DRUGS (2)
  1. MABTHERA [Suspect]
     Indication: RHEUMATOID ARTHRITIS
     Dosage: LAST DOSE OF RITUXIMAB PRIOR TO SAE: 2000 MG
     Route: 065
     Dates: end: 201310
  2. MABTHERA [Suspect]
     Dosage: LAST DOSE PRIOR TO EVENT ON OCT/2013
     Route: 065
     Dates: start: 201310

REACTIONS (1)
  - Cardiopulmonary failure [Fatal]
